FAERS Safety Report 6122585-X (Version None)
Quarter: 2009Q1

REPORT INFORMATION
  Report Type: 
  Country: None (occurrence: None)
  Receive Date: 20090318
  Receipt Date: 20090310
  Transmission Date: 20090719
  Serious: Yes (Life-Threatening, Hospitalization)
  Sender: FDA-Public Use
  Company Number: JP-BAYER-200812429BYL

PATIENT
  Age: 69 Year
  Sex: Female
  Weight: 50 kg

DRUGS (6)
  1. NEXAVAR [Suspect]
     Indication: RENAL CELL CARCINOMA STAGE IV
     Dosage: TOTAL DAILY DOSE: 800 MG  UNIT DOSE: 200 MG
     Route: 048
     Dates: start: 20080911
  2. TENORMIN [Concomitant]
     Route: 048
  3. NORVASC OD [Concomitant]
     Route: 048
  4. THYRADIN S [Concomitant]
     Route: 048
  5. LONGES [Concomitant]
     Route: 048
  6. SANCOBA [Concomitant]
     Route: 031

REACTIONS (8)
  - ALOPECIA [None]
  - FATIGUE [None]
  - HYPERTENSION [None]
  - NEUTROPHIL COUNT DECREASED [None]
  - ORAL PAIN [None]
  - PALMAR-PLANTAR ERYTHRODYSAESTHESIA SYNDROME [None]
  - PYREXIA [None]
  - WHITE BLOOD CELL COUNT DECREASED [None]
